FAERS Safety Report 5353665-4 (Version None)
Quarter: 2007Q2

REPORT INFORMATION
  Report Type: 
  Country: None (occurrence: None)
  Receive Date: 20070612
  Receipt Date: 20070604
  Transmission Date: 20071010
  Serious: Yes (Death, Life-Threatening, Hospitalization, Other)
  Sender: FDA-Public Use
  Company Number: JP-AVENTIS-200710539JP

PATIENT
  Age: 85 Year
  Sex: Male
  Weight: 48.5 kg

DRUGS (26)
  1. LASIX [Suspect]
     Route: 048
     Dates: start: 20061118, end: 20061225
  2. LASIX [Suspect]
     Route: 048
     Dates: start: 20061226, end: 20070118
  3. LASIX [Suspect]
     Route: 048
     Dates: start: 20070119, end: 20070218
  4. LASIX [Suspect]
     Route: 048
     Dates: start: 20070220, end: 20070222
  5. LASIX [Suspect]
     Route: 048
     Dates: start: 20070223, end: 20070227
  6. LASIX [Suspect]
     Route: 042
     Dates: start: 20070226, end: 20070227
  7. CALSLOT [Concomitant]
     Indication: HYPERTENSION
     Route: 048
     Dates: start: 20040106, end: 20070301
  8. DIOVAN [Concomitant]
     Indication: HYPERTENSION
     Route: 048
     Dates: start: 20040106, end: 20070304
  9. ASPIRIN [Concomitant]
     Indication: ANGINA PECTORIS
     Route: 048
     Dates: start: 20040106, end: 20070304
  10. SIGMART [Concomitant]
     Indication: ANGINA PECTORIS
     Route: 048
     Dates: start: 20040106, end: 20070304
  11. DEPAS [Concomitant]
     Indication: INSOMNIA
     Dosage: DOSE UNIT: 003
     Route: 048
     Dates: start: 20040106, end: 20070301
  12. URSO                               /00465701/ [Concomitant]
     Route: 048
     Dates: start: 20061128, end: 20070223
  13. RINDERON                           /00008501/ [Concomitant]
     Dates: start: 20070220, end: 20070220
  14. UREPEARL [Concomitant]
     Dates: start: 20070220, end: 20070220
  15. MUCOSTA [Concomitant]
     Indication: GASTRIC MUCOSAL LESION
     Route: 048
     Dates: start: 20060909, end: 20070301
  16. MYONAL-EPERISONE HYDROCHLORIDE [Concomitant]
     Route: 048
     Dates: start: 20060909, end: 20070301
  17. LOXONIN                            /00890701/ [Concomitant]
     Route: 048
     Dates: start: 20060909, end: 20070227
  18. KETOPROFEN [Concomitant]
     Dates: start: 20060909
  19. SELTOUCH [Concomitant]
     Dates: start: 20060119
  20. FLUITRAN [Concomitant]
     Indication: URINE OUTPUT DECREASED
     Route: 048
     Dates: start: 20070227, end: 20070304
  21. FLUITRAN [Concomitant]
     Indication: OEDEMA
     Route: 048
     Dates: start: 20070227, end: 20070304
  22. KAYEXALATE [Concomitant]
     Indication: HYPERKALAEMIA
     Route: 048
     Dates: start: 20070227, end: 20070303
  23. PREDONINE                          /00016201/ [Concomitant]
     Route: 042
     Dates: start: 20070224, end: 20070304
  24. ZANTAC [Concomitant]
     Indication: GASTRIC MUCOSAL LESION
     Route: 048
     Dates: start: 20070301, end: 20070302
  25. HOKUNALIN [Concomitant]
     Indication: BRONCHOSTENOSIS
     Dates: start: 20070301, end: 20070304
  26. KN 1A [Concomitant]
     Indication: FLUID REPLACEMENT
     Route: 042
     Dates: start: 20070223, end: 20070304

REACTIONS (5)
  - DEHYDRATION [None]
  - ECZEMA [None]
  - EOSINOPHILIA [None]
  - LEUKOCYTOCLASTIC VASCULITIS [None]
  - RENAL FAILURE [None]
